FAERS Safety Report 24915138 (Version 2)
Quarter: 2025Q1

REPORT INFORMATION
  Report Type: Spontaneous
  Country: US (occurrence: US)
  Receive Date: 20250203
  Receipt Date: 20250206
  Transmission Date: 20250409
  Serious: No
  Sender: ABBVIE
  Company Number: US-ABBVIE-6108868

PATIENT

DRUGS (1)
  1. BOTOX [Suspect]
     Active Substance: ONABOTULINUMTOXINA
     Indication: Migraine
     Route: 030

REACTIONS (5)
  - Toxicity to various agents [Unknown]
  - Eyelid ptosis [Unknown]
  - Headache [Unknown]
  - Gait disturbance [Unknown]
  - Diplopia [Unknown]
